FAERS Safety Report 9720748 (Version 1)
Quarter: 2013Q4

REPORT INFORMATION
  Report Type: Report from Study
  Country: US (occurrence: US)
  Receive Date: 20131129
  Receipt Date: 20131129
  Transmission Date: 20140711
  Serious: Yes (Hospitalization)
  Sender: FDA-Public Use
  Company Number: PHEH2013US024804

PATIENT
  Sex: Female

DRUGS (2)
  1. TOBI [Suspect]
     Indication: ALPHA-1 ANTI-TRYPSIN DEFICIENCY
     Dosage: 300 MG, Q12H
     Dates: start: 20131102
  2. TOBI [Suspect]
     Indication: CHEST X-RAY ABNORMAL
     Dosage: 300 MG, Q12H

REACTIONS (2)
  - Abasia [Not Recovered/Not Resolved]
  - Dyspnoea [Not Recovered/Not Resolved]
